FAERS Safety Report 13833831 (Version 3)
Quarter: 2017Q3

REPORT INFORMATION
  Report Type: Spontaneous
  Country: KR (occurrence: KR)
  Receive Date: 20170804
  Receipt Date: 20170817
  Transmission Date: 20171127
  Serious: Yes (Death, Hospitalization, Other)
  Sender: FDA-Public Use
  Company Number: KR-VALIDUS PHARMACEUTICALS LLC-KR-2017VAL001166

PATIENT
  Age: 59 Year
  Sex: Male

DRUGS (4)
  1. SPIRONOLACTONE. [Suspect]
     Active Substance: SPIRONOLACTONE
     Indication: ASCITES
     Dosage: 50 MG, QD
     Route: 065
  2. TENOFOVIR DISOPROXIL FUMARATE. [Suspect]
     Active Substance: TENOFOVIR DISOPROXIL FUMARATE
     Dosage: 300 MG, QOD
     Route: 065
  3. TENOFOVIR DISOPROXIL FUMARATE. [Suspect]
     Active Substance: TENOFOVIR DISOPROXIL FUMARATE
     Indication: HEPATITIS B
     Dosage: 300 MG, QD
     Route: 065
  4. FUROSEMIDE. [Suspect]
     Active Substance: FUROSEMIDE
     Indication: ASCITES
     Dosage: 20 MG, QD
     Route: 065

REACTIONS (19)
  - Vomiting [Fatal]
  - Blood bicarbonate decreased [Fatal]
  - Fatigue [Fatal]
  - Acute kidney injury [Fatal]
  - Glomerular filtration rate decreased [Fatal]
  - Blood urea increased [Fatal]
  - Blood creatinine increased [Fatal]
  - Anion gap increased [Fatal]
  - Nausea [Fatal]
  - Aspartate aminotransferase increased [Fatal]
  - Blood pH decreased [Fatal]
  - Urine output decreased [Fatal]
  - Lactic acidosis [Fatal]
  - PCO2 decreased [Fatal]
  - Multiple organ dysfunction syndrome [Fatal]
  - Blood bilirubin increased [Fatal]
  - Alanine aminotransferase increased [Fatal]
  - Blood lactate dehydrogenase increased [Fatal]
  - Abdominal pain [Fatal]
